FAERS Safety Report 4683030-4 (Version None)
Quarter: 2005Q2

REPORT INFORMATION
  Report Type: 
  Country: None (occurrence: None)
  Receive Date: 20050602
  Receipt Date: 20050304
  Transmission Date: 20051028
  Serious: No
  Sender: FDA-Public Use
  Company Number: USA050392450

PATIENT
  Age: 35 Year
  Sex: Female
  Weight: 59 kg

DRUGS (4)
  1. CYMBALTA [Suspect]
     Indication: DEPRESSION
     Dosage: 90 MG DAY
  2. RISPERDAL [Concomitant]
  3. NYQUIL [Concomitant]
  4. LEXAPRO [Concomitant]

REACTIONS (2)
  - PARAESTHESIA [None]
  - PRESCRIBED OVERDOSE [None]
